FAERS Safety Report 9908074 (Version 1)
Quarter: 2014Q1

REPORT INFORMATION
  Report Type: Spontaneous
  Country: US (occurrence: None)
  Receive Date: 20140212
  Receipt Date: 20140212
  Transmission Date: 20141002
  Serious: Yes (Other)
  Sender: FDA-Public Use
  Company Number: None

PATIENT
  Age: 44 Year
  Sex: Female
  Weight: 59.88 kg

DRUGS (1)
  1. METHOTREXATE [Suspect]
     Indication: COLITIS ULCERATIVE
     Dosage: 50MG/2ML-25MG/ML?ONCE PER WEEK ?INJECTION
     Dates: start: 201304

REACTIONS (2)
  - Nausea [None]
  - Injection site pain [None]
